FAERS Safety Report 7537271-9 (Version None)
Quarter: 2011Q2

REPORT INFORMATION
  Report Type: 
  Country: None (occurrence: None)
  Receive Date: 20110609
  Receipt Date: 20110602
  Transmission Date: 20111010
  Serious: No
  Sender: FDA-Public Use
  Company Number: US-PFIZER INC-2011121012

PATIENT
  Age: 7 Year
  Sex: Male

DRUGS (4)
  1. AMOXICILLIN [Suspect]
     Dosage: 400MG/ 5ML
  2. AMOXICILLIN [Suspect]
     Dosage: 250 MG, UNK
  3. AZITHROMYCIN [Suspect]
     Dosage: UNK
  4. AMOXICILLIN [Suspect]
     Dosage: 500 MG, UNK

REACTIONS (6)
  - ABNORMAL BEHAVIOUR [None]
  - ANGER [None]
  - SCREAMING [None]
  - DISTURBANCE IN ATTENTION [None]
  - AGGRESSION [None]
  - HEADACHE [None]
